FAERS Safety Report 9314934 (Version 2)
Quarter: 2013Q2

REPORT INFORMATION
  Report Type: Spontaneous
  Country: US (occurrence: US)
  Receive Date: 20130529
  Receipt Date: 20130614
  Transmission Date: 20140414
  Serious: Yes (Death, Other)
  Sender: FDA-Public Use
  Company Number: US-BAXTER-2013BAX019351

PATIENT
  Sex: Female

DRUGS (3)
  1. DIANEAL LOW CALCIUM [Suspect]
     Indication: PERITONEAL DIALYSIS
     Route: 033
     Dates: end: 20130518
  2. DIANEAL LOW CALCIUM [Suspect]
     Indication: PERITONEAL DIALYSIS
     Route: 033
     Dates: end: 20130518
  3. DIANEAL LOW CALCIUM [Suspect]
     Dates: end: 20130518

REACTIONS (5)
  - Arrhythmia [Fatal]
  - Organ failure [Fatal]
  - Hypertension [Unknown]
  - Hypotension [Unknown]
  - Blood disorder [Unknown]
